FAERS Safety Report 21624391 (Version 1)
Quarter: 2022Q4

REPORT INFORMATION
  Report Type: Spontaneous
  Country: US (occurrence: US)
  Receive Date: 20221121
  Receipt Date: 20221121
  Transmission Date: 20230113
  Serious: No
  Sender: FDA-Public Use
  Company Number: US-BRACCO-2022US02341

PATIENT
  Sex: Female

DRUGS (4)
  1. LUMASON [Suspect]
     Active Substance: SULFUR HEXAFLUORIDE
     Indication: Cardiac pharmacologic stress test
     Dosage: 1 ML, SINGLE
     Route: 065
     Dates: start: 20220616, end: 20220616
  2. LUMASON [Suspect]
     Active Substance: SULFUR HEXAFLUORIDE
     Indication: Cardiac pharmacologic stress test
     Dosage: 1 ML, SINGLE
     Route: 065
     Dates: start: 20220616, end: 20220616
  3. LUMASON [Suspect]
     Active Substance: SULFUR HEXAFLUORIDE
     Indication: Cardiac pharmacologic stress test
     Dosage: 1 ML, SINGLE
     Route: 065
     Dates: start: 20220616, end: 20220616
  4. SODIUM CHLORIDE [Concomitant]
     Active Substance: SODIUM CHLORIDE
     Dosage: UNK
     Route: 065
     Dates: start: 20220616, end: 20220616

REACTIONS (1)
  - Pruritus [Recovered/Resolved]

NARRATIVE: CASE EVENT DATE: 20220616
